FAERS Safety Report 8326274-2 (Version None)
Quarter: 2012Q2

REPORT INFORMATION
  Report Type: 
  Country: None (occurrence: None)
  Receive Date: 20120501
  Receipt Date: 20120420
  Transmission Date: 20120825
  Serious: Yes (Other)
  Sender: FDA-Public Use
  Company Number: JP-VERTEX PHARMACEUTICALS INC.-AE-2012-005987

PATIENT
  Age: 66 Year
  Sex: Male

DRUGS (10)
  1. ACTOS [Concomitant]
     Route: 048
  2. PEG-INTRON [Concomitant]
     Indication: HEPATITIS C
     Route: 058
     Dates: start: 20120307, end: 20120307
  3. TELAVIC (TELAPREVIR) [Suspect]
     Indication: HEPATITIS C
     Route: 048
     Dates: start: 20120307
  4. URSO 250 [Concomitant]
     Route: 048
  5. PEG-INTRON [Concomitant]
     Route: 058
     Dates: start: 20120314
  6. GLUFAST [Concomitant]
     Route: 048
  7. LISINOPRIL [Concomitant]
     Route: 048
  8. KALIMATE [Concomitant]
     Route: 048
  9. REBETOL [Concomitant]
     Indication: HEPATITIS C
     Route: 048
     Dates: start: 20120307, end: 20120321
  10. REBETOL [Concomitant]
     Route: 048
     Dates: start: 20120322

REACTIONS (5)
  - ANAEMIA [None]
  - PYREXIA [None]
  - WHITE BLOOD CELL COUNT DECREASED [None]
  - CONDITION AGGRAVATED [None]
  - POTENTIATING DRUG INTERACTION [None]
